FAERS Safety Report 7256102-8 (Version None)
Quarter: 2011Q1

REPORT INFORMATION
  Report Type: 
  Country: None (occurrence: None)
  Receive Date: 20110129
  Receipt Date: 20100603
  Transmission Date: 20110831
  Serious: No
  Sender: FDA-Public Use
  Company Number: US-ABBOTT-10P-163-0648739-00

PATIENT
  Age: 33 Year
  Sex: Female

DRUGS (4)
  1. IMURAN [Concomitant]
     Indication: CROHN'S DISEASE
     Route: 048
  2. HUMIRA [Suspect]
     Indication: CROHN'S DISEASE
     Dates: start: 20100423
  3. PREDNISONE [Concomitant]
     Indication: CROHN'S DISEASE
  4. TYLENOL-500 [Concomitant]
     Indication: HEADACHE

REACTIONS (6)
  - CROHN'S DISEASE [None]
  - INJECTION SITE ERYTHEMA [None]
  - HEADACHE [None]
  - INJECTION SITE PAIN [None]
  - INJECTION SITE HAEMATOMA [None]
  - INJECTION SITE PRURITUS [None]
